FAERS Safety Report 7883773-5 (Version None)
Quarter: 2011Q4

REPORT INFORMATION
  Report Type: 
  Country: None (occurrence: None)
  Receive Date: 20111102
  Receipt Date: 20111027
  Transmission Date: 20120403
  Serious: Yes (Hospitalization)
  Sender: FDA-Public Use
  Company Number: AU-SANOFI-AVENTIS-2011SA040552

PATIENT
  Age: 81 Year
  Sex: Male
  Weight: 71 kg

DRUGS (14)
  1. PREDNISOLONE [Suspect]
     Indication: PROSTATE CANCER
     Route: 048
     Dates: start: 20110413
  2. PLAVIX [Concomitant]
  3. PANTOPRAZOLE [Concomitant]
  4. MAXOLON [Concomitant]
  5. CABAZITAXEL [Suspect]
     Indication: PROSTATE CANCER
     Route: 042
     Dates: start: 20110413, end: 20110413
  6. ATENOLOL [Concomitant]
  7. LEUPROLIDE ACETATE [Concomitant]
  8. IRON [Concomitant]
  9. ISORDIL [Concomitant]
     Route: 060
  10. NITROLINGUAL [Concomitant]
  11. CABAZITAXEL [Suspect]
     Route: 042
     Dates: start: 20110615, end: 20110615
  12. ASPIRIN [Concomitant]
  13. ZOMETA [Concomitant]
  14. ATORVASTATIN [Concomitant]

REACTIONS (3)
  - SEPSIS [None]
  - ANAEMIA [None]
  - HYPOTENSION [None]
